FAERS Safety Report 7597393-3 (Version None)
Quarter: 2011Q3

REPORT INFORMATION
  Report Type: 
  Country: None (occurrence: None)
  Receive Date: 20110708
  Receipt Date: 20110627
  Transmission Date: 20111222
  Serious: Yes (Other)
  Sender: FDA-Public Use
  Company Number: PHHY2011US58761

PATIENT
  Sex: Female

DRUGS (13)
  1. LISINOPRIL [Concomitant]
  2. VITAMIN D [Concomitant]
  3. PERCOCET [Concomitant]
  4. LANTUS [Concomitant]
  5. COZAAR [Concomitant]
  6. ASPIRIN [Concomitant]
  7. APIDRA [Concomitant]
  8. GLEEVEC [Suspect]
     Indication: CHRONIC MYELOID LEUKAEMIA
     Dosage: 400 MG, DAILY
     Route: 048
     Dates: start: 20110426
  9. ATENOLOL [Concomitant]
  10. LYRICA [Concomitant]
  11. METFORMIN HCL [Concomitant]
  12. NEURONTIN [Concomitant]
  13. LIPITOR [Concomitant]

REACTIONS (1)
  - CEREBROVASCULAR ACCIDENT [None]
